FAERS Safety Report 7828543-9 (Version None)
Quarter: 2011Q4

REPORT INFORMATION
  Report Type: 
  Country: None (occurrence: None)
  Receive Date: 20111020
  Receipt Date: 20110915
  Transmission Date: 20120403
  Serious: Yes (Death)
  Sender: FDA-Public Use
  Company Number: TR-ROCHE-1001892

PATIENT
  Sex: Male

DRUGS (2)
  1. ACTIVASE [Suspect]
     Indication: INTRACARDIAC THROMBUS
  2. HEPARIN [Suspect]
     Indication: INTRACARDIAC THROMBUS

REACTIONS (2)
  - INTRACARDIAC THROMBUS [None]
  - CEREBRAL HAEMORRHAGE [None]
